FAERS Safety Report 17271985 (Version 1)
Quarter: 2020Q1

REPORT INFORMATION
  Report Type: Spontaneous
  Country: US (occurrence: US)
  Receive Date: 20191223
  Receipt Date: 20191223
  Transmission Date: 20200409
  Serious: Yes (Hospitalization)
  Sender: FDA-Public Use
  Company Number: None

PATIENT
  Age: 65 Year
  Sex: Male

DRUGS (1)
  1. DULOXETINE (DULOXETINE HCL 30MG CAP, EC) [Suspect]
     Active Substance: DULOXETINE HYDROCHLORIDE
     Indication: ALCOHOL USE DISORDER
     Route: 048
     Dates: start: 20191127, end: 20191216

REACTIONS (2)
  - Myoclonus [None]
  - Hepatic encephalopathy [None]

NARRATIVE: CASE EVENT DATE: 20191210
